FAERS Safety Report 8011533-3 (Version None)
Quarter: 2011Q4

REPORT INFORMATION
  Report Type: 
  Country: None (occurrence: None)
  Receive Date: 20111228
  Receipt Date: 20111223
  Transmission Date: 20120403
  Serious: Yes (Other)
  Sender: FDA-Public Use
  Company Number: US-SANOFI-AVENTIS-2011SA075435

PATIENT
  Sex: Female
  Weight: 73.4 kg

DRUGS (14)
  1. LOVENOX [Suspect]
     Route: 065
  2. LOVENOX [Suspect]
     Route: 065
     Dates: end: 20110916
  3. LOVENOX [Suspect]
     Route: 065
  4. LOVENOX [Suspect]
     Route: 065
  5. LOVENOX [Suspect]
     Indication: PULMONARY EMBOLISM
     Route: 065
     Dates: start: 20090420
  6. LOVENOX [Suspect]
     Route: 065
  7. LOVENOX [Suspect]
     Route: 065
  8. MULTI-VITAMINS [Concomitant]
  9. VITAMIN D [Concomitant]
     Indication: NUTRITIONAL SUPPORT
     Dosage: DOSE:2000 UNIT(S)
     Dates: start: 20110101
  10. CALCIUM ACETATE [Concomitant]
  11. PULMICORT [Concomitant]
  12. LOVENOX [Suspect]
     Route: 065
  13. LOVENOX [Suspect]
     Route: 065
  14. LOVENOX [Suspect]
     Route: 065

REACTIONS (7)
  - OSTEOPENIA [None]
  - OSTEOPOROSIS [None]
  - MUSCLE ATROPHY [None]
  - FRACTURE [None]
  - MYALGIA [None]
  - SKIN ATROPHY [None]
  - SKIN FISSURES [None]
